FAERS Safety Report 8362325-7 (Version None)
Quarter: 2012Q2

REPORT INFORMATION
  Report Type: 
  Country: None (occurrence: None)
  Receive Date: 20120516
  Receipt Date: 20120507
  Transmission Date: 20120825
  Serious: Yes (Other)
  Sender: FDA-Public Use
  Company Number: JP-BRISTOL-MYERS SQUIBB COMPANY-16556235

PATIENT

DRUGS (2)
  1. ABILIFY [Suspect]
     Route: 048
  2. SEROQUEL [Concomitant]
     Route: 048

REACTIONS (1)
  - MYOCARDITIS [None]
